FAERS Safety Report 4370494-9 (Version None)
Quarter: 2004Q2

REPORT INFORMATION
  Report Type: 
  Country: None (occurrence: None)
  Receive Date: 20040527
  Receipt Date: 20040511
  Transmission Date: 20050107
  Serious: Yes (Death)
  Sender: FDA-Public Use
  Company Number: JP_040403049

PATIENT
  Age: 71 Year
  Sex: Male
  Weight: 50 kg

DRUGS (6)
  1. VANCOMYCIN [Suspect]
     Indication: STAPHYLOCOCCAL SEPSIS
     Dosage: 2500 MG DAY
     Dates: start: 20040403, end: 20040408
  2. SULPERAZON [Concomitant]
  3. CARBENIN [Concomitant]
  4. PIPERACILLIN SODIUM [Concomitant]
  5. FAMOTIDINE [Concomitant]
  6. DIGILANOGEN C (DESLANOSIDE) [Concomitant]

REACTIONS (11)
  - BLOOD PRESSURE DECREASED [None]
  - CHOLESTASIS [None]
  - DISEASE PROGRESSION [None]
  - HEPATITIS CHOLESTATIC [None]
  - IMMUNE SYSTEM DISORDER [None]
  - LIVER DISORDER [None]
  - OLIGURIA [None]
  - RESPIRATORY FAILURE [None]
  - SHOCK [None]
  - STAPHYLOCOCCAL SEPSIS [None]
  - TACHYPNOEA [None]
